FAERS Safety Report 21548952 (Version 1)
Quarter: 2022Q4

REPORT INFORMATION
  Report Type: Report from Study
  Country: BR (occurrence: BR)
  Receive Date: 20221103
  Receipt Date: 20221103
  Transmission Date: 20230112
  Serious: Yes (Other)
  Sender: FDA-Public Use
  Company Number: BR-AstraZeneca-2022A356220

PATIENT
  Sex: Female
  Weight: 90 kg

DRUGS (4)
  1. METOPROLOL SUCCINATE [Suspect]
     Active Substance: METOPROLOL SUCCINATE
     Indication: Tachycardia
     Dosage: ONE TABLET
     Route: 048
     Dates: start: 2012
  2. METOPROLOL SUCCINATE [Suspect]
     Active Substance: METOPROLOL SUCCINATE
     Indication: Hypertension
     Dosage: ONE TABLET
     Route: 048
     Dates: start: 2012
  3. SIMVASTATIN [Concomitant]
     Active Substance: SIMVASTATIN
     Indication: Blood cholesterol
     Route: 065
  4. LOSARTAN POTASSIUM [Concomitant]
     Active Substance: LOSARTAN POTASSIUM
     Indication: Hypertension
     Dosage: ONE TABLET
     Route: 065

REACTIONS (2)
  - Tachycardia [Not Recovered/Not Resolved]
  - Limb discomfort [Recovering/Resolving]

NARRATIVE: CASE EVENT DATE: 20220101
